FAERS Safety Report 21186368 (Version 1)
Quarter: 2022Q3

REPORT INFORMATION
  Report Type: Report from Study
  Country: CA (occurrence: None)
  Receive Date: 20220808
  Receipt Date: 20220808
  Transmission Date: 20221027
  Serious: Yes (Other)
  Sender: FDA-Public Use
  Company Number: 2022A269797

PATIENT
  Sex: Female

DRUGS (10)
  1. FASENRA [Suspect]
     Active Substance: BENRALIZUMAB
     Indication: Asthma
     Dosage: 30.0MG UNKNOWN
     Route: 058
     Dates: start: 20220605
  2. FASENRA [Suspect]
     Active Substance: BENRALIZUMAB
     Indication: Asthma
     Dosage: 30.0MG UNKNOWN
     Route: 058
     Dates: start: 20220702
  3. FASENRA [Suspect]
     Active Substance: BENRALIZUMAB
     Indication: Asthma
     Dosage: UNKNOWN
     Route: 058
     Dates: start: 20220704
  4. VANCOMYCIN [Concomitant]
     Active Substance: VANCOMYCIN
  5. VENTOLIN [Concomitant]
     Active Substance: ALBUTEROL SULFATE
  6. MOMETASONE [Concomitant]
     Active Substance: MOMETASONE
  7. PREDNISONE [Concomitant]
     Active Substance: PREDNISONE
  8. SPIRIVA RESPIMAT [Concomitant]
     Active Substance: TIOTROPIUM BROMIDE
  9. PULMICORT TURBUHALER [Concomitant]
     Active Substance: BUDESONIDE
  10. SYMBICORT [Concomitant]
     Active Substance: BUDESONIDE\FORMOTEROL FUMARATE DIHYDRATE

REACTIONS (3)
  - Haemorrhage [Recovering/Resolving]
  - Contusion [Unknown]
  - Intentional product use issue [Unknown]
